FAERS Safety Report 20730569 (Version 1)
Quarter: 2022Q2

REPORT INFORMATION
  Report Type: Spontaneous
  Country: US (occurrence: None)
  Receive Date: 20220419
  Receipt Date: 20220419
  Transmission Date: 20220720
  Serious: Yes (Other)
  Sender: FDA-Public Use
  Company Number: None

PATIENT
  Age: 75 Year
  Sex: Female
  Weight: 88.11 kg

DRUGS (7)
  1. AMOXICILLIN\CLAVULANIC ACID [Suspect]
     Active Substance: AMOXICILLIN\CLAVULANIC ACID
     Indication: Cellulitis
     Dosage: FREQUENCY : TWICE A DAY;?
     Route: 048
     Dates: start: 20220225, end: 20220228
  2. AMLODIPINE [Concomitant]
     Active Substance: AMLODIPINE BESYLATE
  3. ATORVASTATIN [Concomitant]
     Active Substance: ATORVASTATIN
  4. CLONIDINE [Concomitant]
     Active Substance: CLONIDINE
  5. LORAZEPAM [Concomitant]
     Active Substance: LORAZEPAM
  6. METOPROLOL [Concomitant]
     Active Substance: METOPROLOL
  7. RISPERIDONE [Concomitant]
     Active Substance: RISPERIDONE

REACTIONS (8)
  - Vomiting [None]
  - Nausea [None]
  - Gastrooesophageal reflux disease [None]
  - Hypophagia [None]
  - Chest pain [None]
  - Abdominal pain upper [None]
  - Anxiety [None]
  - Dyspepsia [None]

NARRATIVE: CASE EVENT DATE: 20220225
